FAERS Safety Report 18114420 (Version 1)
Quarter: 2020Q3

REPORT INFORMATION
  Report Type: Spontaneous
  Country: JP (occurrence: JP)
  Receive Date: 20200805
  Receipt Date: 20200805
  Transmission Date: 20201103
  Serious: Yes (Other)
  Sender: FDA-Public Use
  Company Number: JP-PFIZER INC-2020292041

PATIENT
  Age: 73 Year
  Weight: 87 kg

DRUGS (2)
  1. PROPOFOL MARUISHI [Suspect]
     Active Substance: PROPOFOL
     Dosage: UNK
  2. PRECEDEX [Suspect]
     Active Substance: DEXMEDETOMIDINE HYDROCHLORIDE
     Dosage: UNK

REACTIONS (2)
  - Delayed recovery from anaesthesia [Not Recovered/Not Resolved]
  - Sedation complication [Not Recovered/Not Resolved]
